FAERS Safety Report 13032672 (Version 2)
Quarter: 2017Q1

REPORT INFORMATION
  Report Type: Spontaneous
  Country: US (occurrence: US)
  Receive Date: 20161215
  Receipt Date: 20170323
  Transmission Date: 20170428
  Serious: Yes (Hospitalization, Other)
  Sender: FDA-Public Use
  Company Number: US-ALLERGAN-1675789US

PATIENT
  Age: 33 Year
  Sex: Female
  Weight: 117.46 kg

DRUGS (3)
  1. CYMBALTA [Concomitant]
     Active Substance: DULOXETINE HYDROCHLORIDE
     Indication: DEPRESSION
     Dosage: 60 MG, QHS
     Route: 048
  2. VIBERZI [Suspect]
     Active Substance: ELUXADOLINE
     Indication: IRRITABLE BOWEL SYNDROME
     Dosage: UNK, BID
     Route: 048
     Dates: start: 20161027, end: 20161028
  3. VITAMIN D [Concomitant]
     Active Substance: CHOLECALCIFEROL
     Indication: HYPOVITAMINOSIS

REACTIONS (7)
  - Hypersensitivity [Unknown]
  - Decreased appetite [Not Recovered/Not Resolved]
  - Visual impairment [Unknown]
  - Colitis microscopic [Not Recovered/Not Resolved]
  - Pancreatitis [Recovered/Resolved]
  - Chest pain [Recovered/Resolved]
  - Feeling of body temperature change [Not Recovered/Not Resolved]

NARRATIVE: CASE EVENT DATE: 20161028
